FAERS Safety Report 25396399 (Version 1)
Quarter: 2025Q2

REPORT INFORMATION
  Report Type: Spontaneous
  Country: US (occurrence: US)
  Receive Date: 20250604
  Receipt Date: 20250604
  Transmission Date: 20250716
  Serious: No
  Sender: MYLAN
  Company Number: US-MYLANLABS-2025M1044427

PATIENT
  Age: 93 Year
  Sex: Female
  Weight: 57.15 kg

DRUGS (1)
  1. BREYNA [Suspect]
     Active Substance: BUDESONIDE\FORMOTEROL FUMARATE
     Indication: Obstructive sleep apnoea syndrome
     Dosage: 160/9 MICROGRAM, BID (TWICE DAILY)

REACTIONS (2)
  - Device delivery system issue [Unknown]
  - Off label use [Unknown]

NARRATIVE: CASE EVENT DATE: 20250522
